FAERS Safety Report 10112248 (Version 1)
Quarter: 2014Q2

REPORT INFORMATION
  Report Type: Spontaneous
  Country: US (occurrence: US)
  Receive Date: 20140425
  Receipt Date: 20140425
  Transmission Date: 20141212
  Serious: Yes (Other)
  Sender: FDA-Public Use
  Company Number: US-ELI_LILLY_AND_COMPANY-US201404005982

PATIENT
  Sex: Female

DRUGS (7)
  1. HUMULIN 30% REGULAR, 70% NPH [Suspect]
     Indication: TYPE 2 DIABETES MELLITUS
     Dosage: 20 U, EACH MORNING
     Route: 065
     Dates: start: 2011, end: 20140415
  2. HUMULIN 30% REGULAR, 70% NPH [Suspect]
     Dosage: 10 U, EACH EVENING
     Route: 065
     Dates: start: 2011, end: 20140415
  3. HUMAN INSULIN MIX [Concomitant]
     Indication: TYPE 2 DIABETES MELLITUS
     Dosage: 20 U, EACH MORNING
     Route: 065
     Dates: start: 20140416
  4. HUMAN INSULIN MIX [Concomitant]
     Dosage: 10 U, EACH EVENING
     Route: 065
     Dates: start: 20140416
  5. METFORMIN [Concomitant]
  6. FUROSEMIDE [Concomitant]
  7. LOSARTAN [Concomitant]

REACTIONS (3)
  - Osteomyelitis [Unknown]
  - Injection site pain [Recovered/Resolved]
  - Hyperkeratosis [Unknown]
